FAERS Safety Report 8370820-X (Version None)
Quarter: 2012Q2

REPORT INFORMATION
  Report Type: 
  Country: None (occurrence: None)
  Receive Date: 20120518
  Receipt Date: 20110415
  Transmission Date: 20120825
  Serious: No
  Sender: FDA-Public Use
  Company Number: US-ASTRAZENECA-2011SE22835

PATIENT
  Sex: Female

DRUGS (4)
  1. PRILOSEC [Suspect]
     Indication: GASTROOESOPHAGEAL REFLUX DISEASE
     Route: 048
     Dates: start: 20110401, end: 20110415
  2. TETRACYCLINE [Concomitant]
     Dosage: UNKNOWN
  3. PRILOSEC OTC [Suspect]
     Indication: GASTROOESOPHAGEAL REFLUX DISEASE
     Route: 048
     Dates: start: 20110401, end: 20110415
  4. METRONIDAZOLE [Concomitant]
     Dosage: UNKNOWN

REACTIONS (3)
  - FAECES DISCOLOURED [None]
  - MELAENA [None]
  - DRUG ADMINISTRATION ERROR [None]
